FAERS Safety Report 4308835-0 (Version None)
Quarter: 2004Q1

REPORT INFORMATION
  Report Type: 
  Country: None (occurrence: None)
  Receive Date: 20040227
  Receipt Date: 20040210
  Transmission Date: 20041129
  Serious: Yes (Hospitalization)
  Sender: FDA-Public Use
  Company Number: DSA_24001_2004

PATIENT
  Age: 12 Year
  Sex: Male

DRUGS (1)
  1. ENALAPRIL MALEATE [Suspect]
     Dates: start: 20030601, end: 20031201

REACTIONS (1)
  - TUBULOINTERSTITIAL NEPHRITIS [None]
